FAERS Safety Report 22538153 (Version 1)
Quarter: 2023Q2

REPORT INFORMATION
  Report Type: Report from Study
  Country: US (occurrence: US)
  Receive Date: 20230608
  Receipt Date: 20230608
  Transmission Date: 20230722
  Serious: Yes (Other)
  Sender: FDA-Public Use
  Company Number: US-ABBVIE-5280835

PATIENT
  Sex: Male

DRUGS (1)
  1. VENCLEXTA [Suspect]
     Active Substance: VENETOCLAX
     Indication: Plasma cell myeloma
     Dosage: FORM STRENGTH-200 MG
     Route: 048
     Dates: start: 20230517

REACTIONS (5)
  - Respiratory depth decreased [Unknown]
  - Pharyngeal mass [Unknown]
  - Throat tightness [Unknown]
  - Hypersensitivity [Unknown]
  - Transfusion [Unknown]

NARRATIVE: CASE EVENT DATE: 20230101
